FAERS Safety Report 16745663 (Version 2)
Quarter: 2019Q3

REPORT INFORMATION
  Report Type: Report from Study
  Country: CO (occurrence: CO)
  Receive Date: 20190827
  Receipt Date: 20190916
  Transmission Date: 20191005
  Serious: Yes (Life-Threatening)
  Sender: FDA-Public Use
  Company Number: CO-BRISTOL-MYERS SQUIBB COMPANY-BMS-2019-017252

PATIENT
  Age: 52 Year
  Sex: Female

DRUGS (1)
  1. NIVOLUMAB [Suspect]
     Active Substance: NIVOLUMAB
     Indication: MALIGNANT MELANOMA
     Dosage: 186 MILLIGRAM, Q2WK
     Route: 042
     Dates: start: 20190111

REACTIONS (7)
  - Skin ulcer [Recovering/Resolving]
  - Cholelithiasis [Recovering/Resolving]
  - Hepatic steatosis [Recovering/Resolving]
  - Rash generalised [Recovering/Resolving]
  - Spinal pain [Not Recovered/Not Resolved]
  - Erythema [Recovering/Resolving]
  - Skin exfoliation [Recovering/Resolving]

NARRATIVE: CASE EVENT DATE: 20190210
